FAERS Safety Report 10076654 (Version 1)
Quarter: 2014Q2

REPORT INFORMATION
  Report Type: Spontaneous
  Country: US (occurrence: None)
  Receive Date: 20140411
  Receipt Date: 20140411
  Transmission Date: 20141212
  Serious: Yes (Other)
  Sender: FDA-Public Use
  Company Number: None

PATIENT
  Age: 30 Year
  Sex: Female
  Weight: 62.6 kg

DRUGS (1)
  1. EQUATE MICONAZOLE 1 [Suspect]
     Indication: FUNGAL INFECTION
     Dosage: AT BEDTIME, VAGINAL
     Route: 067
     Dates: start: 20140320, end: 20140322

REACTIONS (2)
  - Drug ineffective [None]
  - Product solubility abnormal [None]
